FAERS Safety Report 23599492 (Version 1)
Quarter: 2024Q1

REPORT INFORMATION
  Report Type: Spontaneous
  Country: ES (occurrence: ES)
  Receive Date: 20240306
  Receipt Date: 20240306
  Transmission Date: 20240409
  Serious: Yes (Other)
  Sender: FDA-Public Use
  Company Number: ES-CELLTRION INC.-2024ES005031

PATIENT

DRUGS (3)
  1. RITUXIMAB [Suspect]
     Active Substance: RITUXIMAB
     Indication: Multiple sclerosis
     Route: 065
  2. OCRELIZUMAB [Suspect]
     Active Substance: OCRELIZUMAB
     Indication: Secondary progressive multiple sclerosis
     Dosage: 300 MG, EVERY 14 DAYS (2ND DOSE: 25/FEB/2021)
     Route: 042
     Dates: start: 20210211
  3. OCRELIZUMAB [Suspect]
     Active Substance: OCRELIZUMAB
     Dosage: 600 MG, EVERY 6 MONTHS (4TH DOSE: 09/FEB/2022. 5TH DOSE: 13/SEP/2022. 6TH DOSE: 11/APR/2023)
     Route: 042
     Dates: start: 20210812

REACTIONS (2)
  - Panniculitis [Unknown]
  - Off label use [Unknown]
